FAERS Safety Report 5254588-1 (Version None)
Quarter: 2007Q1

REPORT INFORMATION
  Report Type: 
  Country: None (occurrence: None)
  Receive Date: 20070302
  Receipt Date: 20070220
  Transmission Date: 20070707
  Serious: Yes (Other)
  Sender: FDA-Public Use
  Company Number: FR-PFIZER INC-2007013978

PATIENT
  Age: 73 Year
  Sex: Male

DRUGS (5)
  1. ZITHROMAX [Suspect]
     Indication: BRONCHITIS
  2. FLECAINIDE ACETATE [Concomitant]
  3. AMIODARONE HCL [Concomitant]
  4. LEVOTHYROXINE SODIUM [Concomitant]
  5. FLUINDIONE [Concomitant]

REACTIONS (1)
  - ATRIAL FIBRILLATION [None]
